FAERS Safety Report 6801806-1 (Version None)
Quarter: 2010Q2

REPORT INFORMATION
  Report Type: 
  Country: None (occurrence: None)
  Receive Date: 20100629
  Receipt Date: 20100622
  Transmission Date: 20101027
  Serious: Yes (Life-Threatening, Other)
  Sender: FDA-Public Use
  Company Number: PHHY2010US41011

PATIENT
  Sex: Female

DRUGS (3)
  1. RECLAST [Suspect]
  2. SYNTHROID [Concomitant]
  3. HUMIRA [Concomitant]

REACTIONS (11)
  - ARTHRALGIA [None]
  - ARTHRITIS [None]
  - ARTHROPATHY [None]
  - CONSTIPATION [None]
  - FEELING ABNORMAL [None]
  - FOAMING AT MOUTH [None]
  - GASTROENTERITIS [None]
  - INFLUENZA [None]
  - NERVOUSNESS [None]
  - TINNITUS [None]
  - TREMOR [None]
